FAERS Safety Report 5304437-8 (Version None)
Quarter: 2007Q2

REPORT INFORMATION
  Report Type: 
  Country: None (occurrence: None)
  Receive Date: 20070416
  Receipt Date: 20070328
  Transmission Date: 20071010
  Serious: Yes (Other)
  Sender: FDA-Public Use
  Company Number: 07042081

PATIENT
  Age: 72 Year
  Sex: Female

DRUGS (5)
  1. WARFARIN SODIUM [Suspect]
     Dosage: ORAL
     Route: 048
  2. SIMVASTATIN [Suspect]
     Indication: HYPERLIPIDAEMIA
     Dosage: 28MG,QD,ORAL
     Route: 048
  3. DILTIAZEM [Concomitant]
  4. SOTALOL HCL [Concomitant]
  5. ATORVASTATIN CALCIUM [Concomitant]

REACTIONS (2)
  - DYSPNOEA [None]
  - MYOPATHY [None]
